FAERS Safety Report 7901858-1 (Version None)
Quarter: 2011Q4

REPORT INFORMATION
  Report Type: 
  Country: None (occurrence: None)
  Receive Date: 20111104
  Receipt Date: 20111019
  Transmission Date: 20120403
  Serious: Yes (Other)
  Sender: FDA-Public Use
  Company Number: JP-20110033

PATIENT
  Age: 66 Year
  Sex: Female

DRUGS (2)
  1. (LIPIODOL ULTRA FLUIDE) (ETHIODIZED OIL) (INJECTION) [Suspect]
     Indication: LIP DISORDER
     Route: 013
  2. EPIRUBICIN HYDROCHLORIDE [Suspect]
     Indication: LIP DISORDER
     Dosage: INTRA-ARTERIAL
     Route: 013

REACTIONS (2)
  - OFF LABEL USE [None]
  - LIVER ABSCESS [None]
